FAERS Safety Report 10221022 (Version 1)
Quarter: 2014Q2

REPORT INFORMATION
  Report Type: Spontaneous
  Country: US (occurrence: None)
  Receive Date: 20140605
  Receipt Date: 20140605
  Transmission Date: 20141212
  Serious: Yes (Death, Hospitalization)
  Sender: FDA-Public Use
  Company Number: None

PATIENT
  Age: 11 Year
  Sex: Female
  Weight: 82.2 kg

DRUGS (2)
  1. DAUNORUBICIN [Suspect]
     Dates: end: 20140527
  2. PEG-L-ASPARAGINASE (PEGASPARGASE, ONCOSPAR) [Suspect]
     Dates: end: 20140515

REACTIONS (11)
  - Constipation [None]
  - Anxiety [None]
  - Coagulopathy [None]
  - Fibrous cortical defect [None]
  - Unresponsive to stimuli [None]
  - Oedema [None]
  - Haematoma [None]
  - Retroperitoneal haemorrhage [None]
  - Peripheral swelling [None]
  - Arthralgia [None]
  - Weight bearing difficulty [None]
